FAERS Safety Report 5157808-7 (Version None)
Quarter: 2006Q4

REPORT INFORMATION
  Report Type: 
  Country: None (occurrence: None)
  Receive Date: 20061127
  Receipt Date: 20061115
  Transmission Date: 20070319
  Serious: Yes (Disabling)
  Sender: FDA-Public Use
  Company Number: ES-ELI_LILLY_AND_COMPANY-ES200611003777

PATIENT
  Age: 46 Year
  Sex: Female

DRUGS (3)
  1. CYMBALTA [Suspect]
     Indication: DEPRESSION
     Dosage: 60 MG, DAILY (1/D)
     Route: 048
     Dates: start: 20060429, end: 20060614
  2. ZOLPIDEM TARTRATE [Concomitant]
     Indication: ANXIETY
     Dosage: 10 MG, UNK
     Route: 048
  3. DORKEN [Concomitant]
     Indication: ANXIETY
     Dosage: 5 MG, UNK

REACTIONS (2)
  - HYPERTENSION [None]
  - RETINAL VEIN THROMBOSIS [None]
